FAERS Safety Report 9281728 (Version 2)
Quarter: 2013Q2

REPORT INFORMATION
  Report Type: Spontaneous
  Country: US (occurrence: US)
  Receive Date: 20130510
  Receipt Date: 20130524
  Transmission Date: 20140414
  Serious: Yes (Death, Hospitalization)
  Sender: FDA-Public Use
  Company Number: US-B.I. PHARMACEUTICALS,INC./RIDGEFIELD-2013-BI-13011BP

PATIENT
  Age: 74 Year
  Sex: Female
  Weight: 160.02 kg

DRUGS (18)
  1. PRADAXA [Suspect]
     Indication: ATRIAL FIBRILLATION
     Dosage: 150 MG
     Dates: start: 20110420, end: 20110427
  2. ASPIRIN [Concomitant]
     Dosage: 81 MG
  3. DUONEB [Concomitant]
  4. MICARDIS [Concomitant]
     Dosage: 20 MG
  5. JANUVIA [Concomitant]
     Dosage: 100 MG
  6. CYMBALTA [Concomitant]
     Dosage: 60 MG
  7. LASIX [Concomitant]
     Dosage: 40 MG
  8. LYRICA [Concomitant]
     Dosage: 300 MG
  9. BYSTOLIC [Concomitant]
     Dosage: 10 MG
  10. HUMALOG [Concomitant]
  11. SIMVASTATIN [Concomitant]
     Dosage: 80 MG
  12. TYLENOL [Concomitant]
  13. VICODIN [Concomitant]
  14. IMDUR [Concomitant]
     Dosage: 30 MG
  15. XANAX [Concomitant]
     Dosage: 1.5 MG
  16. COLACE [Concomitant]
  17. LANTUS [Concomitant]
     Dosage: 6 U
  18. D-5 [Concomitant]

REACTIONS (4)
  - Gastrointestinal haemorrhage [Fatal]
  - Shock [Fatal]
  - Cardiac arrest [Fatal]
  - Acute myocardial infarction [Fatal]
